FAERS Safety Report 19740133 (Version 1)
Quarter: 2021Q3

REPORT INFORMATION
  Report Type: Report from Study
  Country: US (occurrence: US)
  Receive Date: 20210824
  Receipt Date: 20210824
  Transmission Date: 20211014
  Serious: Yes (Other)
  Sender: FDA-Public Use
  Company Number: US-EMD SERONO-9260423

PATIENT
  Age: 62 Year
  Sex: Female

DRUGS (1)
  1. REBIF [Suspect]
     Active Substance: INTERFERON BETA-1A
     Indication: PRODUCT USED FOR UNKNOWN INDICATION
     Route: 058
     Dates: start: 20060609, end: 20201201

REACTIONS (3)
  - Impaired healing [Recovering/Resolving]
  - Hip arthroplasty [Unknown]
  - Wound [Recovering/Resolving]

NARRATIVE: CASE EVENT DATE: 202004
